FAERS Safety Report 22245777 (Version 1)
Quarter: 2023Q2

REPORT INFORMATION
  Report Type: Spontaneous
  Country: US (occurrence: US)
  Receive Date: 20230424
  Receipt Date: 20230424
  Transmission Date: 20230721
  Serious: Yes (Other)
  Sender: FDA-Public Use
  Company Number: US-BRISTOL-MYERS SQUIBB COMPANY-2023-055217

PATIENT
  Age: 70 Year
  Sex: Female
  Weight: 68.4 kg

DRUGS (8)
  1. ORENCIA [Suspect]
     Active Substance: ABATACEPT
     Indication: Rheumatoid arthritis
  2. COVID-19 VACCINE [Concomitant]
     Indication: Prophylaxis
     Dates: start: 20210225
  3. COVID-19 VACCINE [Concomitant]
     Dates: start: 20210903
  4. COVID-19 VACCINE [Concomitant]
     Dates: start: 20220317
  5. COVID-19 VACCINE [Concomitant]
     Dates: start: 20220817
  6. COVID-19 VACCINE [Concomitant]
     Dates: start: 20221117
  7. COVID-19 VACCINE [Concomitant]
     Dates: start: 20210325
  8. ATORVASTATIN [Concomitant]
     Active Substance: ATORVASTATIN
     Indication: Product used for unknown indication

REACTIONS (2)
  - COVID-19 [Unknown]
  - Immunodeficiency [Unknown]
